FAERS Safety Report 4934001-1 (Version None)
Quarter: 2006Q1

REPORT INFORMATION
  Report Type: 
  Country: None (occurrence: None)
  Receive Date: 20060307
  Receipt Date: 20060227
  Transmission Date: 20060701
  Serious: Yes (Hospitalization)
  Sender: FDA-Public Use
  Company Number: JP-AVENTIS-200610682JP

PATIENT
  Age: 74 Year
  Sex: Female
  Weight: 46 kg

DRUGS (13)
  1. ARAVA [Suspect]
     Indication: RHEUMATOID ARTHRITIS
     Route: 048
     Dates: start: 20040114, end: 20040116
  2. ARAVA [Suspect]
     Route: 048
     Dates: start: 20040117, end: 20040302
  3. ARAVA [Suspect]
     Route: 048
     Dates: start: 20040303, end: 20040303
  4. ARAVA [Suspect]
     Route: 048
     Dates: start: 20040317, end: 20040318
  5. ARAVA [Suspect]
     Route: 048
     Dates: start: 20040319, end: 20040525
  6. ARAVA [Suspect]
     Route: 048
     Dates: start: 20040819
  7. LIMETHASON [Concomitant]
     Indication: RHEUMATOID ARTHRITIS
     Route: 042
  8. VOLTAREN [Concomitant]
     Indication: RHEUMATOID ARTHRITIS
     Dosage: DOSE: 1 PIECE
     Route: 054
  9. RINDERON [Concomitant]
     Indication: RHEUMATOID ARTHRITIS
     Dosage: DOSE: 1 TABLET
     Route: 048
  10. SAIREI-TO [Concomitant]
     Indication: RHEUMATOID ARTHRITIS
     Route: 048
  11. KENACORT-A OPHTHALMIC OINTMENT [Concomitant]
     Indication: RHEUMATOID ARTHRITIS
     Dosage: ROUTE: INTRAARTICULAR, INTRASYNOVIAL
     Route: 050
     Dates: start: 20040512
  12. XYLOCAINE [Concomitant]
     Indication: RHEUMATOID ARTHRITIS
     Dosage: ROUTE: INTRAARTICULAR, INTRASYNOVIAL
     Route: 050
     Dates: start: 20040512
  13. MS HOT PACK [Concomitant]
     Indication: RHEUMATOID ARTHRITIS
     Dosage: DOSE: 25 SHEETS/2 WEEKS
     Route: 062
     Dates: start: 20040415

REACTIONS (2)
  - SPINAL OPERATION [None]
  - SURGERY [None]
